FAERS Safety Report 10400294 (Version 2)
Quarter: 2014Q3

REPORT INFORMATION
  Report Type: Spontaneous
  Country: US (occurrence: US)
  Receive Date: 20140821
  Receipt Date: 20140821
  Transmission Date: 20150326
  Serious: Yes (Other)
  Sender: FDA-Public Use
  Company Number: US-ASTRAZENECA-1999AU11631

PATIENT
  Age: 72 Year
  Sex: Female
  Weight: 44 kg

DRUGS (22)
  1. ATACAND [Suspect]
     Active Substance: CANDESARTAN CILEXETIL
     Indication: HYPERTENSION
     Route: 048
     Dates: start: 19990824
  2. RHINOCORT AQUA [Suspect]
     Active Substance: BUDESONIDE
     Indication: RHINITIS ALLERGIC
     Route: 045
     Dates: start: 20010626
  3. ESTRATAB ESTROGEN [Concomitant]
     Indication: HORMONE REPLACEMENT THERAPY
     Dosage: 0.75MG 25 DAYS DAILY
     Route: 048
  4. OMEGA 3 [Concomitant]
     Active Substance: OMEGA-3 FATTY ACIDS
     Indication: NUTRITIONAL SUPPLEMENTATION
  5. VITAMIN C [Concomitant]
     Active Substance: ASCORBIC ACID
     Indication: VITAMIN SUPPLEMENTATION
  6. ORTHO-EST [Concomitant]
     Active Substance: ESTROPIPATE
  7. PROMETRIUM [Concomitant]
     Active Substance: PROGESTERONE
  8. DIDRONEL [Concomitant]
     Active Substance: ETIDRONATE DISODIUM
  9. BETA CAROTENE [Concomitant]
     Indication: NUTRITIONAL SUPPLEMENTATION
  10. ZINC [Concomitant]
     Active Substance: ZINC\ZINC CHLORIDE
     Indication: MINERAL SUPPLEMENTATION
  11. PROBIOTIC [Concomitant]
     Active Substance: PROBIOTICS NOS
     Indication: NUTRITIONAL SUPPLEMENTATION
  12. TYLENOL [Concomitant]
     Active Substance: ACETAMINOPHEN
     Indication: PAIN
     Dosage: PRN
     Route: 048
  13. D3 [Concomitant]
     Active Substance: 25-HYDROXYCHOLECALCIFEROL, 5-TRANS-
     Indication: VITAMIN SUPPLEMENTATION
  14. ALOMAX CR [Concomitant]
     Indication: NUTRITIONAL SUPPLEMENTATION
  15. VITAMIN E [Concomitant]
     Active Substance: .ALPHA.-TOCOPHEROL
     Indication: VITAMIN SUPPLEMENTATION
  16. PREVACID [Concomitant]
     Active Substance: LANSOPRAZOLE
     Dosage: ONE PILL A MONTH
  17. LEVOFLOXACIN [Concomitant]
     Active Substance: LEVOFLOXACIN
  18. FOLIC ACID. [Concomitant]
     Active Substance: FOLIC ACID
     Indication: NUTRITIONAL SUPPLEMENTATION
  19. ATACAND [Suspect]
     Active Substance: CANDESARTAN CILEXETIL
     Indication: HYPERTENSION
     Route: 048
     Dates: start: 2006
  20. ATROVENT [Concomitant]
     Active Substance: IPRATROPIUM BROMIDE
     Indication: RHINITIS ALLERGIC
     Dosage: 0.06% 2 SPY DAILY
     Route: 045
     Dates: start: 2001
  21. CAL -MAG [Concomitant]
     Indication: MINERAL SUPPLEMENTATION
     Dosage: 650/334MG DAILY
  22. COQ10 [Concomitant]
     Active Substance: UBIDECARENONE
     Indication: ENZYME SUPPLEMENTATION

REACTIONS (11)
  - Memory impairment [Not Recovered/Not Resolved]
  - Arthralgia [Not Recovered/Not Resolved]
  - Hunger [Unknown]
  - Rash [Recovered/Resolved]
  - Night sweats [Unknown]
  - Drug dose omission [Unknown]
  - Cataract [Unknown]
  - Tendonitis [Unknown]
  - Night blindness [Unknown]
  - Rhinorrhoea [Unknown]
  - Cough [Unknown]
